APPROVED DRUG PRODUCT: XTORO
Active Ingredient: FINAFLOXACIN
Strength: 0.3%
Dosage Form/Route: SUSPENSION/DROPS;OTIC
Application: N206307 | Product #001
Applicant: FONSECA BIOSCIENCES LLC
Approved: Dec 17, 2014 | RLD: Yes | RS: No | Type: DISCN

PATENTS:
Patent 8536167 | Expires: Aug 8, 2031
Patent 9504691 | Expires: Nov 21, 2033
Patent 9119859 | Expires: Jul 2, 2030
Patent 9993483 | Expires: Jul 2, 2030